FAERS Safety Report 13896180 (Version 1)
Quarter: 2017Q3

REPORT INFORMATION
  Report Type: Spontaneous
  Country: US (occurrence: US)
  Receive Date: 20170823
  Receipt Date: 20170823
  Transmission Date: 20171127
  Serious: No
  Sender: FDA-Public Use
  Company Number: US-THE MEDICINES COMPANY-US-MDCO-17-00357

PATIENT
  Age: 88 Year
  Sex: Female
  Weight: 68 kg

DRUGS (3)
  1. ORBACTIV [Suspect]
     Active Substance: ORITAVANCIN
     Indication: CELLULITIS
     Route: 041
     Dates: start: 20170524, end: 20170524
  2. ORBACTIV [Suspect]
     Active Substance: ORITAVANCIN
     Dosage: 175 ML/HR
     Route: 041
     Dates: start: 20170524, end: 20170524
  3. KETOROLAC [Suspect]
     Active Substance: KETOROLAC\KETOROLAC TROMETHAMINE
     Indication: PAIN
     Route: 042
     Dates: start: 20170524, end: 20170524

REACTIONS (1)
  - Red man syndrome [Recovered/Resolved]

NARRATIVE: CASE EVENT DATE: 20170524
